FAERS Safety Report 9126934 (Version 1)
Quarter: 2013Q1

REPORT INFORMATION
  Report Type: Spontaneous
  Country: US (occurrence: US)
  Receive Date: 20130228
  Receipt Date: 20130228
  Transmission Date: 20140127
  Serious: Yes (Other)
  Sender: FDA-Public Use
  Company Number: PHEH2013US004526

PATIENT
  Age: 5 None
  Sex: Female

DRUGS (1)
  1. TOBI [Suspect]
     Indication: BRONCHIECTASIS
     Dosage: 300 MG, BID

REACTIONS (5)
  - Oxygen saturation decreased [Unknown]
  - Drug administered to patient of inappropriate age [Unknown]
  - Vomiting [Unknown]
  - Pyrexia [Unknown]
  - Malaise [Unknown]
